FAERS Safety Report 14014723 (Version 2)
Quarter: 2017Q4

REPORT INFORMATION
  Report Type: Spontaneous
  Country: US (occurrence: US)
  Receive Date: 20170927
  Receipt Date: 20171017
  Transmission Date: 20180321
  Serious: No
  Sender: FDA-Public Use
  Company Number: US-PFIZER INC-2017411770

PATIENT
  Age: 48 Year
  Sex: Male
  Weight: 79.38 kg

DRUGS (5)
  1. ADVIL [Suspect]
     Active Substance: IBUPROFEN
     Indication: EYE PAIN
     Dosage: 4 TABLETS TWICE A DAY
     Route: 048
     Dates: start: 2017
  2. ADVIL [Suspect]
     Active Substance: IBUPROFEN
     Indication: INFLAMMATION
     Dosage: 4 TABLETS TWICE A DAY
     Route: 048
     Dates: start: 201707, end: 2017
  3. PREDNISONE. [Concomitant]
     Active Substance: PREDNISONE
  4. ADVIL PM [Suspect]
     Active Substance: DIPHENHYDRAMINE CITRATE\IBUPROFEN
     Indication: SLEEP DISORDER
     Dosage: 220MG TABLETS, 4 TABLETS ONCE A DAY
     Route: 048
     Dates: start: 201708, end: 201709
  5. CORTISONE [Concomitant]
     Active Substance: CORTISONE\HYDROCORTISONE
     Dosage: UNK
     Dates: start: 201709

REACTIONS (5)
  - Drug ineffective [Unknown]
  - Middle insomnia [Unknown]
  - Overdose [Unknown]
  - Drug screen positive [Unknown]
  - Cold sweat [Unknown]

NARRATIVE: CASE EVENT DATE: 2017
